FAERS Safety Report 9777522 (Version 2)
Quarter: 2014Q1

REPORT INFORMATION
  Report Type: Spontaneous
  Country: IE (occurrence: IE)
  Receive Date: 20131222
  Receipt Date: 20140127
  Transmission Date: 20141002
  Serious: Yes (Other)
  Sender: FDA-Public Use
  Company Number: PHHY2013IE149952

PATIENT
  Age: 87 Year
  Sex: Female

DRUGS (5)
  1. STALEVO [Suspect]
     Indication: PARKINSON^S DISEASE
     Dosage: 1 DF (200/50/12.5 MG), TID
     Route: 048
     Dates: start: 201301
  2. STALEVO [Suspect]
     Dosage: DOSE INCREASED
     Route: 048
     Dates: end: 20131126
  3. ASPIRIN [Concomitant]
     Dosage: 75 MG, QD
     Route: 048
  4. SIMVASTATIN [Concomitant]
     Dosage: 10 MG, QD
     Route: 048
  5. PANTOPRAZOLE [Concomitant]
     Dosage: 40 MG, QD
     Route: 048

REACTIONS (1)
  - Eyelid ptosis [Recovered/Resolved]
